FAERS Safety Report 24279053 (Version 1)
Quarter: 2024Q3

REPORT INFORMATION
  Report Type: Spontaneous
  Country: US (occurrence: US)
  Receive Date: 20240903
  Receipt Date: 20240903
  Transmission Date: 20241017
  Serious: Yes (Hospitalization, Other)
  Sender: FRESENIUS KABI
  Company Number: US-FreseniusKabi-FK202412929

PATIENT
  Age: 67 Year
  Sex: Male
  Weight: 87.9 kg

DRUGS (11)
  1. MESNA [Suspect]
     Active Substance: MESNA
     Indication: Acute lymphocytic leukaemia
     Dosage: 300 MG/M2, CYCLIC: CYCLE 1 , 3, DAYS 1-3?THERAPY ONGOING
     Route: 042
     Dates: start: 20240426
  2. METHYLPREDNISOLONE SODIUM SUCCINATE [Suspect]
     Active Substance: METHYLPREDNISOLONE SODIUM SUCCINATE
     Indication: Acute lymphocytic leukaemia
     Dosage: 50 MG, CYCLIC: CYCLE 2,4, EVERY 12 HRS X 6 DOSES, DAYS 1-3?THERAPY ONGOING?FORM OF ADMINISTRATION: P
     Route: 042
  3. INOTUZUMAB OZOGAMICIN [Suspect]
     Active Substance: INOTUZUMAB OZOGAMICIN
     Indication: Acute lymphocytic leukaemia
     Dosage: CYCLE 1: 0.6 MG/M2 D2, 0.3 MG/M2 D8. TOTAL 0.9 MG/M2; CYCLE 2-4: 0.3 MG/M2 D2, 0.3 MG/M2 D8. TOTAL 0
     Route: 042
     Dates: start: 20240424
  4. CYTARABINE [Suspect]
     Active Substance: CYTARABINE
     Indication: Acute lymphocytic leukaemia
     Dosage: 100 MG, CYCLIC: CYCLE 1-2, DAY 2, DAY 8, INTRATHECAL
     Route: 037
  5. CYTARABINE [Suspect]
     Active Substance: CYTARABINE
     Dosage: 0.5 G/M2/DOSE, CYCLIC: CYCLE 2, 4, EVERY 12 HRS X4 DOSES, DAYS 2, 3, INTRAVENOUS?THERAPY ONGOING
     Route: 042
  6. METHOTREXATE SODIUM [Suspect]
     Active Substance: METHOTREXATE SODIUM
     Indication: Acute lymphocytic leukaemia
     Dosage: 12 MG, CYCLIC: CYCLE 1-2, DAY 2, DAY 8
     Route: 037
     Dates: start: 20240425
  7. METHOTREXATE SODIUM [Suspect]
     Active Substance: METHOTREXATE SODIUM
     Dosage: 250 MG/M2, CYCLIC: CYCLE 2, 4, DAY 1?THERAPY ONGOING
     Route: 042
  8. RITUXIMAB [Suspect]
     Active Substance: RITUXIMAB
     Indication: Acute lymphocytic leukaemia
     Dosage: 375 MG/M2, CYCLIC: CYCLE 1-4, DAY 2, DAY 8?THERAPY ONGOING
     Route: 042
     Dates: start: 20240426
  9. VINCRISTINE SULFATE [Suspect]
     Active Substance: VINCRISTINE SULFATE
     Indication: Acute lymphocytic leukaemia
     Dosage: 2 MG, CYCLIC: CYCLE 1, 3, DAY 1, DAY 8?THERAPY ONGOING
     Route: 042
     Dates: start: 20240423
  10. CYCLOPHOSPHAMIDE [Suspect]
     Active Substance: CYCLOPHOSPHAMIDE
     Indication: Acute lymphocytic leukaemia
     Dosage: 150 MG/M2, CYCLIC: CYCLE 1, 3, EVERY 12 HRS X 6 DOSES, DAYS 1-3?THERAPY ONGOING
     Route: 042
     Dates: start: 20240426
  11. DEXAMETHASONE [Suspect]
     Active Substance: DEXAMETHASONE
     Indication: Acute lymphocytic leukaemia
     Dosage: 20 MG, IV OR PO CYCLIC: CYCLE 1, 3, DAYS 1-4, DAYS 11-14?THERAPY ONGOING
     Dates: start: 20240418

REACTIONS (6)
  - Hypotension [Recovered/Resolved]
  - Dizziness [Recovered/Resolved]
  - Sinus tachycardia [Recovered/Resolved]
  - Muscular weakness [Recovered/Resolved]
  - Hypovolaemia [Unknown]
  - Off label use [Unknown]

NARRATIVE: CASE EVENT DATE: 20240426
